FAERS Safety Report 4822167-3 (Version None)
Quarter: 2005Q4

REPORT INFORMATION
  Report Type: 
  Country: None (occurrence: None)
  Receive Date: 20051103
  Receipt Date: 20051019
  Transmission Date: 20060501
  Serious: Yes (Hospitalization)
  Sender: FDA-Public Use
  Company Number: FR_051007360

PATIENT
  Age: 54 Year
  Sex: Female

DRUGS (5)
  1. PROZAC [Suspect]
     Indication: DEPRESSION
     Dosage: 3 DAG FORM DAY
     Dates: end: 20050913
  2. DERINOX [Concomitant]
  3. CLONAZEPAM [Concomitant]
  4. IMIGRANE (SUMATRIPTAN SUCCINATE) [Concomitant]
  5. LEXOMIL (BROMAZEPAM) [Concomitant]

REACTIONS (5)
  - ANTINEUTROPHIL CYTOPLASMIC ANTIBODY POSITIVE [None]
  - DYSPNOEA [None]
  - FIBROSIS [None]
  - HYPOXIA [None]
  - PNEUMONITIS [None]
